FAERS Safety Report 5532507-8 (Version None)
Quarter: 2007Q4

REPORT INFORMATION
  Report Type: 
  Country: None (occurrence: None)
  Receive Date: 20071203
  Receipt Date: 20071121
  Transmission Date: 20080405
  Serious: Yes (Other)
  Sender: FDA-Public Use
  Company Number: US-PFIZER INC-2007099233

PATIENT
  Sex: Female
  Weight: 72.6 kg

DRUGS (4)
  1. DILANTIN [Suspect]
     Indication: CONVULSION
  2. WARFARIN SODIUM [Concomitant]
  3. COZAAR [Concomitant]
  4. PROCARDIA [Concomitant]

REACTIONS (4)
  - ARTHRALGIA [None]
  - GAIT DISTURBANCE [None]
  - JOINT SWELLING [None]
  - RASH [None]
